FAERS Safety Report 6829856-X (Version None)
Quarter: 2010Q3

REPORT INFORMATION
  Report Type: 
  Country: None (occurrence: None)
  Receive Date: 20100710
  Receipt Date: 20070906
  Transmission Date: 20110219
  Serious: Yes (Disabling)
  Sender: FDA-Public Use
  Company Number: GB-JNJFOC-20100701121

PATIENT
  Age: 56 Year
  Sex: Female

DRUGS (12)
  1. ACETAMINOPHEN AND CODEINE PHOSPHATE [Suspect]
     Indication: ARTHRALGIA
     Dosage: 2.0 DOSE FORM
     Route: 048
  2. TRAMADOL HCL [Suspect]
     Indication: POSTOPERATIVE ANALGESIA
     Dosage: 100.0 MG
     Route: 048
  3. OXYCONTIN [Interacting]
     Indication: POSTOPERATIVE ANALGESIA
     Dosage: 20MG
     Route: 048
  4. OXYCONTIN [Interacting]
     Dosage: 80MG
     Route: 048
  5. OXYCONTIN [Interacting]
     Dosage: 40MG
     Route: 048
  6. FLUOXETINE HCL [Interacting]
     Indication: DEPRESSION
     Dosage: 40.0 MG
     Route: 048
  7. AMLODIPINE [Concomitant]
     Route: 065
  8. BENDROFLUMETHIAZIDE [Concomitant]
     Route: 065
  9. DICLOFENAC SODIUM [Concomitant]
     Route: 065
  10. LANSOPRAZOLE [Concomitant]
     Route: 065
  11. RAMIPRIL [Concomitant]
     Route: 065
  12. SIMVASTATIN [Concomitant]
     Route: 065

REACTIONS (3)
  - DRUG INTERACTION [None]
  - HALLUCINATION [None]
  - MYOCLONUS [None]
